FAERS Safety Report 9219555 (Version 1)
Quarter: 2013Q2

REPORT INFORMATION
  Report Type: Spontaneous
  Country: US (occurrence: None)
  Receive Date: 20130408
  Receipt Date: 20130408
  Transmission Date: 20140414
  Serious: Yes (Hospitalization)
  Sender: FDA-Public Use
  Company Number: None

PATIENT
  Age: 0 Day
  Sex: Female

DRUGS (1)
  1. SENSORCAINE [Suspect]
     Indication: CAESAREAN SECTION
     Dosage: EPIDURAL, 0.75%I DEXTROSE 8.25% 2ML
     Route: 008
     Dates: start: 20130404, end: 20130404

REACTIONS (1)
  - Drug ineffective [None]
